FAERS Safety Report 17071161 (Version 2)
Quarter: 2019Q4

REPORT INFORMATION
  Report Type: Spontaneous
  Country: DE (occurrence: DE)
  Receive Date: 20191125
  Receipt Date: 20191127
  Transmission Date: 20200122
  Serious: Yes (Hospitalization)
  Sender: FDA-Public Use
  Company Number: DE-EISAI MEDICAL RESEARCH-EC-2019-065584

PATIENT
  Age: 22 Year
  Sex: Female
  Weight: 63 kg

DRUGS (9)
  1. LAMOTRIGINE. [Suspect]
     Active Substance: LAMOTRIGINE
     Dosage: 125-150-200 MG
     Route: 048
     Dates: start: 20191120
  2. BUCCOLAM [Concomitant]
     Active Substance: MIDAZOLAM HYDROCHLORIDE
     Indication: PRODUCT USED FOR UNKNOWN INDICATION
     Dosage: DOSE UNKNOWN
     Route: 065
  3. FYCOMPA [Suspect]
     Active Substance: PERAMPANEL
     Indication: EPILEPSY
     Dosage: 6MG AND 8 MG ON ALTERNATING DAYS
     Route: 048
     Dates: end: 20191117
  4. CLOBAZAM. [Suspect]
     Active Substance: CLOBAZAM
     Indication: INTENTIONAL OVERDOSE
     Route: 048
     Dates: start: 20191118, end: 20191118
  5. LACOSAMIDE. [Concomitant]
     Active Substance: LACOSAMIDE
     Indication: EPILEPSY
     Route: 048
     Dates: end: 20191117
  6. LAMOTRIGINE. [Suspect]
     Active Substance: LAMOTRIGINE
     Dates: start: 20191118, end: 20191118
  7. LACOSAMIDE. [Concomitant]
     Active Substance: LACOSAMIDE
     Route: 048
     Dates: start: 20191120
  8. FYCOMPA [Suspect]
     Active Substance: PERAMPANEL
     Route: 048
     Dates: start: 20191118, end: 20191118
  9. LAMOTRIGINE. [Suspect]
     Active Substance: LAMOTRIGINE
     Indication: EPILEPSY
     Dosage: 125-25-75-250 MG
     Route: 048
     Dates: end: 20191117

REACTIONS (3)
  - Intentional overdose [Recovered/Resolved]
  - Suicide attempt [Recovered/Resolved]
  - Psychomotor skills impaired [Unknown]

NARRATIVE: CASE EVENT DATE: 20191118
